FAERS Safety Report 5729052-3 (Version None)
Quarter: 2008Q2

REPORT INFORMATION
  Report Type: 
  Country: None (occurrence: None)
  Receive Date: 20080505
  Receipt Date: 20080505
  Transmission Date: 20081010
  Serious: No
  Sender: FDA-Public Use
  Company Number: None

PATIENT
  Sex: Female
  Weight: 69.4003 kg

DRUGS (1)
  1. TEGRETOL [Suspect]
     Indication: CONVULSION
     Dosage: 100 MG ONCE PO TID #50
     Route: 048

REACTIONS (2)
  - DRUG EXPOSURE DURING PREGNANCY [None]
  - PREGNANCY [None]
